FAERS Safety Report 10574460 (Version 1)
Quarter: 2014Q4

REPORT INFORMATION
  Report Type: Spontaneous
  Country: JP (occurrence: JP)
  Receive Date: 20141110
  Receipt Date: 20141110
  Transmission Date: 20150529
  Serious: Yes (Other)
  Sender: FDA-Public Use
  Company Number: JP-JNJFOC-20141104516

PATIENT
  Age: 87 Year
  Sex: Male

DRUGS (2)
  1. CHLORPROMAZINE [Suspect]
     Active Substance: CHLORPROMAZINE
     Indication: PRODUCT USED FOR UNKNOWN INDICATION
     Route: 065
     Dates: start: 2013, end: 2013
  2. REMINYL [Suspect]
     Active Substance: GALANTAMINE
     Indication: DEMENTIA
     Route: 048
     Dates: start: 2013

REACTIONS (2)
  - Drug-induced liver injury [Recovered/Resolved]
  - Jaundice [Recovered/Resolved]

NARRATIVE: CASE EVENT DATE: 20130308
